FAERS Safety Report 24845884 (Version 2)
Quarter: 2025Q1

REPORT INFORMATION
  Report Type: Report from Study
  Country: US (occurrence: US)
  Receive Date: 20250115
  Receipt Date: 20250122
  Transmission Date: 20250409
  Serious: Yes (Hospitalization, Other)
  Sender: REGENERON
  Company Number: US-REGENERON PHARMACEUTICALS, INC.-2025-016172

PATIENT
  Sex: Male

DRUGS (1)
  1. CEMIPLIMAB [Suspect]
     Active Substance: CEMIPLIMAB
     Indication: Product used for unknown indication
     Dosage: 350MG (7ML) IV INFUSION OVER 30 MINUTES EVERY 21 DAYS
     Route: 042

REACTIONS (4)
  - Intervertebral discitis [Unknown]
  - Food refusal [Unknown]
  - Dysstasia [Unknown]
  - Gait disturbance [Unknown]

NARRATIVE: CASE EVENT DATE: 20241201
